FAERS Safety Report 14851433 (Version 1)
Quarter: 2018Q2

REPORT INFORMATION
  Report Type: Spontaneous
  Country: FR (occurrence: FR)
  Receive Date: 20180507
  Receipt Date: 20180507
  Transmission Date: 20180711
  Serious: Yes (Other)
  Sender: FDA-Public Use
  Company Number: FR-MERCK KGAA-2047261

PATIENT
  Age: 57 Year
  Sex: Female

DRUGS (1)
  1. NOVOTHYROX [Suspect]
     Active Substance: LEVOTHYROXINE SODIUM
     Indication: PRODUCT USED FOR UNKNOWN INDICATION

REACTIONS (36)
  - Confusional state [None]
  - Suicidal ideation [None]
  - Fatigue [None]
  - Road traffic accident [None]
  - Psychiatric symptom [None]
  - Palpitations [None]
  - Tremor [None]
  - Feeling guilty [None]
  - Feelings of worthlessness [None]
  - Thyroxine increased [None]
  - Dyspnoea [None]
  - Irritability [None]
  - Anti-thyroid antibody positive [None]
  - Hot flush [None]
  - Hypoacusis [None]
  - Hypotension [None]
  - Social avoidant behaviour [None]
  - Red blood cell sedimentation rate increased [None]
  - Disturbance in attention [None]
  - Depression [None]
  - Depressed mood [None]
  - Decreased interest [None]
  - Asthenia [None]
  - Impaired work ability [None]
  - Memory impairment [None]
  - Blood thyroid stimulating hormone decreased [None]
  - Loss of personal independence in daily activities [None]
  - Onychoclasis [None]
  - Visual impairment [None]
  - Headache [None]
  - Panic attack [None]
  - Crying [None]
  - Insomnia [None]
  - Nervousness [None]
  - Colitis [None]
  - Impaired driving ability [None]

NARRATIVE: CASE EVENT DATE: 20170512
